FAERS Safety Report 17272771 (Version 1)
Quarter: 2020Q1

REPORT INFORMATION
  Report Type: Spontaneous
  Country: CA (occurrence: CA)
  Receive Date: 20200110
  Receipt Date: 20200110
  Transmission Date: 20200409
  Serious: Yes (Disabling, Other)
  Sender: FDA-Public Use
  Company Number: None

PATIENT
  Age: 48 Year
  Sex: Female
  Weight: 58.97 kg

DRUGS (4)
  1. ORAL CONTRACEPTION [Concomitant]
  2. VITAMIN B12 [Concomitant]
     Active Substance: CYANOCOBALAMIN
  3. U DREAM, FULL NIGHT SEELP [Suspect]
     Active Substance: HERBALS
     Indication: SLEEP DISORDER
     Route: 048
     Dates: start: 20190912, end: 20190912
  4. VITAMIN D [Concomitant]
     Active Substance: VITAMIN D NOS

REACTIONS (2)
  - Memory impairment [None]
  - Road traffic accident [None]

NARRATIVE: CASE EVENT DATE: 20190913
